FAERS Safety Report 25251757 (Version 4)
Quarter: 2025Q2

REPORT INFORMATION
  Report Type: Report from Study
  Country: FR (occurrence: FR)
  Receive Date: 20250429
  Receipt Date: 20250620
  Transmission Date: 20250716
  Serious: Yes (Hospitalization)
  Sender: PFIZER
  Company Number: FR-PFIZER INC-PV202500049240

PATIENT
  Age: 82 Year
  Sex: Male
  Weight: 67.6 kg

DRUGS (18)
  1. ELRANATAMAB [Suspect]
     Active Substance: ELRANATAMAB
     Indication: Plasma cell myeloma
     Dosage: 12 MG, 1X/DAY AT D1 (CURE 1)
     Route: 058
     Dates: start: 20250325
  2. ELRANATAMAB [Suspect]
     Active Substance: ELRANATAMAB
     Dates: start: 20250328
  3. ELRANATAMAB [Suspect]
     Active Substance: ELRANATAMAB
     Dosage: 76 MG, 1X/DAY AT D8 (CURE 1)
     Dates: start: 20250401
  4. ELRANATAMAB [Suspect]
     Active Substance: ELRANATAMAB
     Dosage: 76 MG, 1X/DAY AT D15 (CURE 1)
     Dates: start: 20250407
  5. ELRANATAMAB [Suspect]
     Active Substance: ELRANATAMAB
     Dosage: 76 MG, 1X/DAY AT D22 (CURE 1)
     Dates: start: 20250414
  6. ELRANATAMAB [Suspect]
     Active Substance: ELRANATAMAB
     Dosage: 76 MG, 1X/DAY AT D1 (CURE 2)
     Dates: start: 20250423
  7. ELRANATAMAB [Suspect]
     Active Substance: ELRANATAMAB
     Dosage: 76 MG, 1X/DAY AT D8 (CURE 2)
     Dates: start: 20250429
  8. ELRANATAMAB [Suspect]
     Active Substance: ELRANATAMAB
     Dosage: 76 MG, 1X/DAY AT D15 (CURE 2)
     Dates: start: 20250506
  9. ELRANATAMAB [Suspect]
     Active Substance: ELRANATAMAB
     Dosage: 76 MG, 1X/DAY AT D22 (CURE 2)
     Dates: start: 20250513
  10. SULFAMETHOXAZOLE\TRIMETHOPRIM [Concomitant]
     Active Substance: SULFAMETHOXAZOLE\TRIMETHOPRIM
     Route: 048
     Dates: start: 20210312
  11. VALACYCLOVIR HYDROCHLORIDE [Concomitant]
     Active Substance: VALACYCLOVIR HYDROCHLORIDE
     Route: 048
     Dates: start: 20210312
  12. LEUCOVORIN CALCIUM [Concomitant]
     Active Substance: LEUCOVORIN CALCIUM
     Route: 048
     Dates: start: 20240116
  13. FILGRASTIM [Concomitant]
     Active Substance: FILGRASTIM
     Route: 058
     Dates: start: 20210326
  14. ALFUZOSIN HYDROCHLORIDE [Concomitant]
     Active Substance: ALFUZOSIN HYDROCHLORIDE
     Route: 048
  15. PANTOPRAZOLE [Concomitant]
     Active Substance: PANTOPRAZOLE
     Route: 048
     Dates: start: 20210415
  16. LOPERAMIDE [Concomitant]
     Active Substance: LOPERAMIDE
     Dates: start: 20240521
  17. ACETAMINOPHEN [Concomitant]
     Active Substance: ACETAMINOPHEN
     Route: 048
  18. CHOLECALCIFEROL [Concomitant]
     Active Substance: CHOLECALCIFEROL
     Route: 048

REACTIONS (1)
  - Pancytopenia [Recovering/Resolving]

NARRATIVE: CASE EVENT DATE: 20250419
